FAERS Safety Report 8556465-7 (Version None)
Quarter: 2012Q3

REPORT INFORMATION
  Report Type: 
  Country: None (occurrence: None)
  Receive Date: 20120801
  Receipt Date: 20120730
  Transmission Date: 20120928
  Serious: Yes (Disabling)
  Sender: FDA-Public Use
  Company Number: PHFR2012GB004249

PATIENT
  Age: 46 Year
  Sex: Female
  Weight: 50 kg

DRUGS (2)
  1. LYRICA [Suspect]
  2. VOLTAREN [Suspect]
     Dosage: 50 MG, DAILY
     Dates: start: 20120101

REACTIONS (6)
  - BACK DISORDER [None]
  - JOINT STIFFNESS [None]
  - GAIT DISTURBANCE [None]
  - INFLUENZA LIKE ILLNESS [None]
  - OEDEMA PERIPHERAL [None]
  - DRUG INEFFECTIVE [None]
